FAERS Safety Report 5193059-8 (Version None)
Quarter: 2006Q4

REPORT INFORMATION
  Report Type: 
  Country: None (occurrence: None)
  Receive Date: 20061228
  Receipt Date: 20060321
  Transmission Date: 20070319
  Serious: No
  Sender: FDA-Public Use
  Company Number: US-GLAXOSMITHKLINE-A0599385A

PATIENT
  Age: 59 Year
  Sex: Male
  Weight: 93.2 kg

DRUGS (5)
  1. AVODART [Suspect]
     Route: 048
     Dates: start: 20060310, end: 20060314
  2. FLOMAX [Concomitant]
     Dosage: .4MG PER DAY
     Route: 048
     Dates: start: 20060123
  3. PROCARDIA [Concomitant]
     Indication: HYPERTENSION
     Dosage: 60MG PER DAY
     Route: 048
     Dates: start: 20060123
  4. DILANTIN [Concomitant]
     Dosage: 100MG THREE TIMES PER DAY
  5. PHENOBARBITAL TAB [Concomitant]
     Dosage: 30MG THREE TIMES PER DAY
     Route: 048

REACTIONS (1)
  - DIZZINESS [None]
